FAERS Safety Report 5321448-7 (Version None)
Quarter: 2007Q2

REPORT INFORMATION
  Report Type: 
  Country: None (occurrence: None)
  Receive Date: 20070510
  Receipt Date: 20070509
  Transmission Date: 20071010
  Serious: Yes (Hospitalization)
  Sender: FDA-Public Use
  Company Number: A0650647A

PATIENT
  Age: 7 Month
  Sex: Female
  Weight: 5 kg

DRUGS (1)
  1. ZANTAC [Suspect]
     Indication: DRUG USE FOR UNKNOWN INDICATION
     Dosage: 37.5MG TWICE PER DAY
     Route: 065

REACTIONS (4)
  - ADVERSE EVENT [None]
  - HYDROCEPHALUS [None]
  - MEDICATION ERROR [None]
  - OVERDOSE [None]
